FAERS Safety Report 7114606-2 (Version None)
Quarter: 2010Q4

REPORT INFORMATION
  Report Type: 
  Country: None (occurrence: None)
  Receive Date: 20101121
  Receipt Date: 20101108
  Transmission Date: 20110411
  Serious: Yes (Other)
  Sender: FDA-Public Use
  Company Number: US-MYLANLABS-2010S1020853

PATIENT
  Age: 61 Year
  Sex: Male

DRUGS (7)
  1. METFORMIN HCL [Suspect]
     Indication: TYPE 2 DIABETES MELLITUS
     Route: 048
  2. SIMVASTATIN [Concomitant]
     Route: 065
  3. NIASPAN [Concomitant]
     Route: 065
  4. GLYBURIDE [Concomitant]
     Route: 065
  5. LISINOPRIL [Concomitant]
     Route: 065
  6. METOPROLOL TARTRATE [Concomitant]
     Route: 065
  7. HYDROCHLOROTHIAZIDE [Concomitant]
     Route: 065

REACTIONS (2)
  - HEPATOTOXICITY [None]
  - JAUNDICE [None]
